FAERS Safety Report 5239689-6 (Version None)
Quarter: 2007Q1

REPORT INFORMATION
  Report Type: 
  Country: None (occurrence: None)
  Receive Date: 20070216
  Receipt Date: 20070206
  Transmission Date: 20070707
  Serious: Yes (Hospitalization)
  Sender: FDA-Public Use
  Company Number: US-SANOFI-SYNTHELABO-F01200700148

PATIENT
  Sex: Female
  Weight: 60 kg

DRUGS (3)
  1. BEVACIZUMAB [Suspect]
     Route: 041
     Dates: start: 20061019, end: 20061019
  2. DOCETAXEL [Suspect]
     Route: 041
     Dates: start: 20061019, end: 20061019
  3. OXALIPLATIN [Suspect]
     Route: 041
     Dates: start: 20061019, end: 20061019

REACTIONS (4)
  - CYSTITIS HAEMORRHAGIC [None]
  - DEHYDRATION [None]
  - HAEMATURIA [None]
  - THROMBOCYTOPENIA [None]
